FAERS Safety Report 7792452-4 (Version None)
Quarter: 2011Q4

REPORT INFORMATION
  Report Type: 
  Country: None (occurrence: None)
  Receive Date: 20111003
  Receipt Date: 20110926
  Transmission Date: 20120403
  Serious: Yes (Other)
  Sender: FDA-Public Use
  Company Number: US-PFIZER INC-2011229654

PATIENT

DRUGS (1)
  1. PRISTIQ [Suspect]
     Dosage: UNK

REACTIONS (2)
  - DRUG WITHDRAWAL SYNDROME NEONATAL [None]
  - MATERNAL EXPOSURE DURING PREGNANCY [None]
